FAERS Safety Report 17567924 (Version 1)
Quarter: 2020Q1

REPORT INFORMATION
  Report Type: Spontaneous
  Country: CN (occurrence: CN)
  Receive Date: 20200320
  Receipt Date: 20200320
  Transmission Date: 20200409
  Serious: Yes (Other)
  Sender: FDA-Public Use
  Company Number: CN-VALIDUS PHARMACEUTICALS LLC-CN-2020VAL000208

PATIENT

DRUGS (1)
  1. FUROSEMIDE. [Suspect]
     Active Substance: FUROSEMIDE
     Indication: ACUTE PULMONARY OEDEMA
     Dosage: 40 MG, UNK
     Route: 042

REACTIONS (7)
  - Hypovolaemia [Recovering/Resolving]
  - Pulmonary oedema [Recovering/Resolving]
  - Hypoxia [Recovering/Resolving]
  - Drug ineffective [Recovering/Resolving]
  - Hyperdynamic left ventricle [Recovering/Resolving]
  - Left ventricular dysfunction [Recovering/Resolving]
  - Left ventricular end-diastolic pressure increased [Recovering/Resolving]
